FAERS Safety Report 6457277-0 (Version None)
Quarter: 2009Q4

REPORT INFORMATION
  Report Type: 
  Country: None (occurrence: None)
  Receive Date: 20091125
  Receipt Date: 20091117
  Transmission Date: 20100525
  Serious: Yes (Death)
  Sender: FDA-Public Use
  Company Number: GB-PFIZER INC-2009286156

PATIENT
  Age: 15 Year
  Sex: Female

DRUGS (3)
  1. SOMATROPIN [Suspect]
     Indication: GROWTH HORMONE DEFICIENCY
     Dosage: 1.2 MG, 1X/DAY
     Dates: start: 20040419, end: 20080707
  2. DESMOPRESSIN ACETATE [Concomitant]
     Dosage: 10 UG, 1X/DAY
     Dates: start: 20000301
  3. LAMOTRIGINE [Concomitant]
     Dosage: 300 MG, 2X/DAY
     Dates: start: 20070529

REACTIONS (1)
  - EPILEPSY [None]
